FAERS Safety Report 4771692-2 (Version None)
Quarter: 2005Q3

REPORT INFORMATION
  Report Type: 
  Country: None (occurrence: None)
  Receive Date: 20050914
  Receipt Date: 20050901
  Transmission Date: 20060218
  Serious: Yes (Hospitalization)
  Sender: FDA-Public Use
  Company Number: CHNY2005JP01049

PATIENT
  Age: 31 Year
  Sex: Male
  Weight: 74 kg

DRUGS (3)
  1. TAVEGYL (NCH)(CLEMASTINE HYDROGEN FUMARATE) UNKNOWN [Suspect]
     Indication: URTICARIA CHRONIC
     Dosage: 2 MG, QD, ORAL
     Route: 048
     Dates: start: 20050408, end: 20050504
  2. ATARAX [Suspect]
     Indication: URTICARIA CHRONIC
     Dosage: 75 MG, QD , ORAL
     Route: 048
     Dates: start: 20050401, end: 20050504
  3. TALION (BEPOTASTINE BESILATE) [Suspect]
     Indication: URTICARIA CHRONIC
     Dosage: 30 MG, QD, ORAL
     Route: 048
     Dates: start: 20050408, end: 20050504

REACTIONS (3)
  - CHEILITIS [None]
  - TOXIC EPIDERMAL NECROLYSIS [None]
  - TOXIC SKIN ERUPTION [None]
